FAERS Safety Report 6368076-2 (Version None)
Quarter: 2009Q3

REPORT INFORMATION
  Report Type: 
  Country: None (occurrence: None)
  Receive Date: 20090922
  Receipt Date: 20090821
  Transmission Date: 20100115
  Serious: No
  Sender: FDA-Public Use
  Company Number: US-BAYER-200931044NA

PATIENT
  Sex: Female

DRUGS (1)
  1. MIRENA [Suspect]
     Indication: CONTRACEPTION
     Dosage: CONTINUOUS
     Route: 015
     Dates: start: 20050708, end: 20090728

REACTIONS (3)
  - COMPLICATION OF DEVICE REMOVAL [None]
  - DEVICE SHAPE ALTERATION [None]
  - VAGINAL DISCHARGE [None]
